FAERS Safety Report 18565615 (Version 1)
Quarter: 2020Q4

REPORT INFORMATION
  Report Type: Spontaneous
  Country: SE (occurrence: SE)
  Receive Date: 20201201
  Receipt Date: 20201201
  Transmission Date: 20210114
  Serious: Yes (Death, Other)
  Sender: FDA-Public Use
  Company Number: SE-AMGEN-SWESP2020194081

PATIENT

DRUGS (5)
  1. IRON [Concomitant]
     Active Substance: IRON
  2. CALCIUM [Concomitant]
     Active Substance: CALCIUM
  3. ICODEXTRIN [Concomitant]
     Active Substance: ICODEXTRIN
  4. CINACALCET HCL [Suspect]
     Active Substance: CINACALCET HYDROCHLORIDE
     Indication: PRODUCT USED FOR UNKNOWN INDICATION
     Dosage: UNK
     Route: 065
  5. ERYTHROPOIETIN [Concomitant]
     Active Substance: ERYTHROPOIETIN

REACTIONS (4)
  - Cardiovascular disorder [Unknown]
  - Peritonitis [Unknown]
  - Death [Fatal]
  - Renal transplant [Unknown]
